FAERS Safety Report 5639767-3 (Version None)
Quarter: 2008Q1

REPORT INFORMATION
  Report Type: 
  Country: None (occurrence: None)
  Receive Date: 20080225
  Receipt Date: 20080214
  Transmission Date: 20080703
  Serious: Yes (Life-Threatening, Hospitalization)
  Sender: FDA-Public Use
  Company Number: B0509103A

PATIENT
  Age: 61 Year
  Sex: Female
  Weight: 81.8289 kg

DRUGS (1)
  1. AUGMENTIN '250' [Suspect]
     Indication: DRUG USE FOR UNKNOWN INDICATION

REACTIONS (4)
  - ANAPHYLACTIC SHOCK [None]
  - BLOOD PRESSURE DECREASED [None]
  - HEART RATE DECREASED [None]
  - LOSS OF CONSCIOUSNESS [None]
